FAERS Safety Report 8344342-6 (Version None)
Quarter: 2012Q2

REPORT INFORMATION
  Report Type: 
  Country: None (occurrence: None)
  Receive Date: 20120508
  Receipt Date: 20120423
  Transmission Date: 20120825
  Serious: Yes (Other)
  Sender: FDA-Public Use
  Company Number: GB-ROCHE-1023217

PATIENT
  Sex: Female
  Weight: 110 kg

DRUGS (13)
  1. LUCENTIS [Suspect]
     Dates: start: 20111128
  2. LUCENTIS [Suspect]
     Indication: AGE-RELATED MACULAR DEGENERATION
     Route: 050
     Dates: start: 20071130
  3. LUCENTIS [Suspect]
     Dates: start: 20110317
  4. LUCENTIS [Suspect]
     Dates: start: 20080616
  5. LUCENTIS [Suspect]
     Dates: start: 20080429
  6. LUCENTIS [Suspect]
     Dates: start: 20080721
  7. LUCENTIS [Suspect]
     Dates: start: 20080828
  8. LUCENTIS [Suspect]
     Dates: start: 20110516
  9. LUCENTIS [Suspect]
     Dates: start: 20110728
  10. LUCENTIS [Suspect]
     Dates: start: 20071231
  11. LUCENTIS [Suspect]
     Dates: start: 20080201
  12. LUCENTIS [Suspect]
     Dates: start: 20080331
  13. LUCENTIS [Suspect]
     Dates: start: 20111014

REACTIONS (6)
  - HYPERTENSION [None]
  - CARDIOVASCULAR DISORDER [None]
  - AMAUROSIS [None]
  - TRANSIENT ISCHAEMIC ATTACK [None]
  - VITREOUS DETACHMENT [None]
  - INAPPROPRIATE SCHEDULE OF DRUG ADMINISTRATION [None]
